FAERS Safety Report 10619425 (Version 1)
Quarter: 2014Q4

REPORT INFORMATION
  Report Type: Spontaneous
  Country: GB (occurrence: GB)
  Receive Date: 20141202
  Receipt Date: 20141202
  Transmission Date: 20150529
  Serious: Yes (Other)
  Sender: FDA-Public Use
  Company Number: PHHY2014GB153691

PATIENT
  Age: 74 Year
  Sex: Male
  Weight: 84.4 kg

DRUGS (10)
  1. HYDROCORTISONE. [Concomitant]
     Active Substance: HYDROCORTISONE
     Dates: start: 20141013, end: 20141112
  2. SIMVASTATIN. [Concomitant]
     Active Substance: SIMVASTATIN
     Dates: start: 20140815
  3. GLYCERYL TRINITRATE [Concomitant]
     Active Substance: NITROGLYCERIN
     Dates: start: 20140815
  4. MONOMIL [Concomitant]
     Dates: start: 20140815
  5. ASPIRIN. [Concomitant]
     Active Substance: ASPIRIN
     Dates: start: 20140815, end: 20141024
  6. FLUCLOXACILLIN [Concomitant]
     Active Substance: FLUCLOXACILLIN
     Dates: start: 20141013, end: 20141020
  7. TAMSULOSIN [Suspect]
     Active Substance: TAMSULOSIN
     Dates: start: 20140717
  8. CORACTEN [Concomitant]
     Dates: start: 20140815, end: 20141107
  9. MOMETASONE [Concomitant]
     Active Substance: MOMETASONE
     Dates: start: 20141020
  10. PARACETAMOL [Concomitant]
     Active Substance: ACETAMINOPHEN
     Dates: start: 20140905, end: 20141024

REACTIONS (1)
  - Lichenoid keratosis [Not Recovered/Not Resolved]
